FAERS Safety Report 6793385-2 (Version None)
Quarter: 2010Q2

REPORT INFORMATION
  Report Type: 
  Country: None (occurrence: None)
  Receive Date: 20100624
  Receipt Date: 20100202
  Transmission Date: 20101027
  Serious: Yes (Hospitalization)
  Sender: FDA-Public Use
  Company Number: US-MYLANLABS-2010S1001066

PATIENT
  Age: 34 Year
  Sex: Male
  Weight: 74.84 kg

DRUGS (22)
  1. CLOZAPINE [Suspect]
     Indication: DEPRESSION
     Route: 048
     Dates: start: 20091110, end: 20091214
  2. CLOZAPINE [Suspect]
     Indication: PSYCHOTIC DISORDER
     Route: 048
     Dates: start: 20091110, end: 20091214
  3. CLOZAPINE [Suspect]
     Indication: AGGRESSION
     Route: 048
     Dates: start: 20091110, end: 20091214
  4. CLOZAPINE [Suspect]
     Indication: MOOD ALTERED
     Route: 048
     Dates: start: 20091110, end: 20091214
  5. CLOZAPINE [Suspect]
     Route: 048
     Dates: start: 20091110, end: 20091214
  6. CLOZAPINE [Suspect]
     Route: 048
     Dates: start: 20091110, end: 20091214
  7. CLOZAPINE [Suspect]
     Route: 048
     Dates: start: 20091110, end: 20091214
  8. CLOZAPINE [Suspect]
     Route: 048
     Dates: start: 20091110, end: 20091214
  9. CELEXA [Suspect]
     Dates: end: 20091120
  10. CELEXA [Suspect]
     Dates: start: 20091121, end: 20091203
  11. CELEXA [Suspect]
     Dates: start: 20091204
  12. VISTARIL [Suspect]
     Dosage: 100MG PO OR IM PRN UP TO 2X/DAY
  13. FOSAMAX [Concomitant]
  14. CELEXA [Concomitant]
     Dosage: VARYING DOSES
  15. KLONOPIN [Concomitant]
  16. NEURONTIN [Concomitant]
  17. INVEGA /05724801/ [Concomitant]
     Dosage: VARYING DOSES
  18. ATIVAN [Concomitant]
     Route: 048
  19. DEPAKOTE [Concomitant]
  20. ENULOSE [Concomitant]
  21. VISTARIL [Concomitant]
     Dosage: IM OR PO UP TO 2X/DAY
  22. CALTRATE [Concomitant]

REACTIONS (7)
  - ANTIPSYCHOTIC DRUG LEVEL INCREASED [None]
  - DIARRHOEA [None]
  - GASTROENTERITIS [None]
  - GRANULOCYTOPENIA [None]
  - ILEUS PARALYTIC [None]
  - PNEUMONIA [None]
  - VOMITING [None]
